FAERS Safety Report 21265310 (Version 3)
Quarter: 2022Q3

REPORT INFORMATION
  Report Type: Spontaneous
  Country: US (occurrence: US)
  Receive Date: 20220829
  Receipt Date: 20220916
  Transmission Date: 20221026
  Serious: No
  Sender: FDA-Public Use
  Company Number: US-BAYER-2022A118899

PATIENT
  Age: 23 Year
  Sex: Female

DRUGS (1)
  1. ESTRADIOL HEMIHYDRATE [Suspect]
     Active Substance: ESTRADIOL HEMIHYDRATE
     Dosage: 0.1MG/1D 4TTSM
     Route: 062

REACTIONS (3)
  - Device adhesion issue [None]
  - Device physical property issue [None]
  - Intentional dose omission [None]
